FAERS Safety Report 22114585 (Version 1)
Quarter: 2023Q1

REPORT INFORMATION
  Report Type: Spontaneous
  Country: US (occurrence: None)
  Receive Date: 20230317
  Receipt Date: 20230317
  Transmission Date: 20230417
  Serious: Yes (unspecified)
  Sender: FDA-Public Use
  Company Number: None

PATIENT
  Age: 26 Year
  Sex: Female
  Weight: 72.12 kg

DRUGS (8)
  1. OCREVUS [Suspect]
     Active Substance: OCRELIZUMAB
  2. COSMETICS [Suspect]
     Active Substance: COSMETICS
  3. OCREVUS [Concomitant]
     Active Substance: OCRELIZUMAB
     Dates: start: 20230317, end: 20230317
  4. SODIUM CHLORIDE [Concomitant]
     Active Substance: SODIUM CHLORIDE
     Dates: start: 20230317, end: 20230317
  5. PEPCID [Concomitant]
     Active Substance: FAMOTIDINE
     Dates: start: 20230317, end: 20230317
  6. BENADRYL [Concomitant]
     Active Substance: DIPHENHYDRAMINE HYDROCHLORIDE
     Dates: end: 20230317
  7. SolumedroI [Concomitant]
     Dates: start: 20230317, end: 20230317
  8. TYLENOL [Concomitant]
     Active Substance: ACETAMINOPHEN
     Dates: start: 20230317, end: 20230317

REACTIONS (3)
  - Throat irritation [None]
  - Infusion related reaction [None]
  - Throat lesion [None]

NARRATIVE: CASE EVENT DATE: 20230317
